FAERS Safety Report 5009628-1 (Version None)
Quarter: 2006Q2

REPORT INFORMATION
  Report Type: 
  Country: None (occurrence: None)
  Receive Date: 20060524
  Receipt Date: 20060323
  Transmission Date: 20061013
  Serious: Yes (Other)
  Sender: FDA-Public Use
  Company Number: US-GLAXOSMITHKLINE-A0598827A

PATIENT
  Age: 77 Year
  Sex: Male

DRUGS (2)
  1. AVODART [Suspect]
     Indication: BENIGN PROSTATIC HYPERPLASIA
     Dosage: .5MG PER DAY
     Route: 048
     Dates: start: 20060316
  2. WARFARIN SODIUM [Concomitant]

REACTIONS (3)
  - ARTHRALGIA [None]
  - CONSTIPATION [None]
  - MUSCLE ATROPHY [None]
